FAERS Safety Report 5281021-6 (Version None)
Quarter: 2007Q1

REPORT INFORMATION
  Report Type: 
  Country: None (occurrence: None)
  Receive Date: 20061229
  Receipt Date: 20060918
  Transmission Date: 20070707
  Serious: Yes (Other)
  Sender: FDA-Public Use
  Company Number: 2006UW16220

PATIENT
  Age: 77 Year
  Sex: Male
  Weight: 87.0906 kg

DRUGS (5)
  1. CRESTOR [Suspect]
     Indication: HYPERCHOLESTEROLAEMIA
     Dosage: 20 MG QD PO
     Route: 048
     Dates: start: 20060714, end: 20060731
  2. PANTOPRAZOLE [Concomitant]
  3. TOPROL-XL [Concomitant]
  4. UROXATRAL [Concomitant]
  5. ASPIRIN [Concomitant]

REACTIONS (3)
  - ABDOMINAL DISCOMFORT [None]
  - HEADACHE [None]
  - HYPERHIDROSIS [None]
